FAERS Safety Report 6841738-6 (Version None)
Quarter: 2010Q3

REPORT INFORMATION
  Report Type: 
  Country: None (occurrence: None)
  Receive Date: 20100714
  Receipt Date: 20070713
  Transmission Date: 20110219
  Serious: No
  Sender: FDA-Public Use
  Company Number: US-PFIZER INC-2007060241

PATIENT
  Age: 74 Year
  Sex: Female
  Weight: 68.2 kg

DRUGS (6)
  1. CHANTIX [Suspect]
     Indication: SMOKING CESSATION THERAPY
     Route: 048
     Dates: start: 20070501
  2. SPIRIVA [Concomitant]
     Route: 048
  3. FOSAMAX [Concomitant]
     Route: 048
  4. ANTIDEPRESSANTS [Concomitant]
     Indication: DEPRESSION
     Route: 048
  5. CALCIUM [Concomitant]
     Route: 048
  6. OXYGEN [Concomitant]
     Indication: LUNG DISORDER

REACTIONS (3)
  - NAUSEA [None]
  - NIGHTMARE [None]
  - VOMITING [None]
